FAERS Safety Report 8847407 (Version 1)
Quarter: 2012Q4

REPORT INFORMATION
  Report Type: 
  Country: US (occurrence: US)
  Receive Date: 20121018
  Receipt Date: 20121018
  Transmission Date: 20130627
  Serious: No
  Sender: FDA-Public Use
  Company Number: US-PFIZER INC-2012255039

PATIENT
  Age: 79 Year
  Sex: Female
  Weight: 61.22 kg

DRUGS (3)
  1. LATANOPROST [Suspect]
     Indication: GLAUCOMA
     Dosage: one drop in each eye, 1x/day
     Route: 047
     Dates: start: 2011
  2. LATANOPROST [Suspect]
  3. LEVOBUNOLOL [Concomitant]
     Dosage: UNK

REACTIONS (3)
  - Product dropper issue [Unknown]
  - Product expiration date issue [Unknown]
  - Incorrect dose administered [Unknown]
